FAERS Safety Report 8006697-1 (Version None)
Quarter: 2011Q4

REPORT INFORMATION
  Report Type: 
  Country: None (occurrence: None)
  Receive Date: 20111227
  Receipt Date: 20111214
  Transmission Date: 20120403
  Serious: Yes (Other)
  Sender: FDA-Public Use
  Company Number: CA-JNJFOC-20111208488

PATIENT
  Sex: Female
  Weight: 50.4 kg

DRUGS (4)
  1. REMICADE [Suspect]
     Indication: CROHN'S DISEASE
     Dates: start: 20100218
  2. PANTOPRAZOLE [Concomitant]
  3. TYLENOL W/ CODEINE NO. 3 [Concomitant]
  4. BIRTH CONTROL PILL [Concomitant]

REACTIONS (1)
  - FISTULA [None]
